FAERS Safety Report 23600234 (Version 1)
Quarter: 2024Q1

REPORT INFORMATION
  Report Type: Spontaneous
  Country: CN (occurrence: CN)
  Receive Date: 20240306
  Receipt Date: 20240306
  Transmission Date: 20240410
  Serious: Yes (Other)
  Sender: FDA-Public Use
  Company Number: CN-Jiangsu Hengrui Medicine Co., Ltd.-2154078

PATIENT
  Age: 65 Year
  Sex: Female
  Weight: 45 kg

DRUGS (10)
  1. CISATRACURIUM BESYLATE [Suspect]
     Active Substance: CISATRACURIUM BESYLATE
     Route: 017
     Dates: start: 20240222, end: 20240222
  2. ACETAMINOPHEN [Suspect]
     Active Substance: ACETAMINOPHEN
     Route: 017
     Dates: start: 20240222, end: 20240222
  3. SODIUM ACETATE [Concomitant]
     Active Substance: SODIUM ACETATE
     Route: 041
     Dates: start: 20240222, end: 20240222
  4. CALCIUM CHLORIDE\POTASSIUM CHLORIDE\SODIUM CHLORIDE [Concomitant]
     Active Substance: CALCIUM CHLORIDE\POTASSIUM CHLORIDE\SODIUM CHLORIDE
     Route: 041
     Dates: start: 20240222, end: 20240222
  5. ALFENTANIL HYDROCHLORIDE [Suspect]
     Active Substance: ALFENTANIL HYDROCHLORIDE
     Route: 017
     Dates: start: 20240222, end: 20240222
  6. AZASETRON HYDROCHLORIDE [Suspect]
     Active Substance: AZASETRON HYDROCHLORIDE
     Route: 017
     Dates: start: 20240222, end: 20240222
  7. DEXMEDETOMIDINE HYDROCHLORIDE [Suspect]
     Active Substance: DEXMEDETOMIDINE HYDROCHLORIDE
     Route: 017
     Dates: start: 20240222, end: 20240222
  8. REMIFENTANIL HYDROCHLORIDE [Suspect]
     Active Substance: REMIFENTANIL HYDROCHLORIDE
     Dates: start: 20240222, end: 20240222
  9. PROPOFOL [Suspect]
     Active Substance: PROPOFOL
     Route: 017
     Dates: start: 20240222, end: 20240222
  10. MANNITOL [Suspect]
     Active Substance: MANNITOL

REACTIONS (1)
  - Vomiting [Recovering/Resolving]

NARRATIVE: CASE EVENT DATE: 20240222
